FAERS Safety Report 23747755 (Version 1)
Quarter: 2024Q2

REPORT INFORMATION
  Report Type: Spontaneous
  Country: US (occurrence: None)
  Receive Date: 20240416
  Receipt Date: 20240416
  Transmission Date: 20240715
  Serious: Yes (Hospitalization)
  Sender: FDA-Public Use
  Company Number: None

PATIENT
  Sex: Male

DRUGS (2)
  1. COPAXONE [Suspect]
     Active Substance: GLATIRAMER ACETATE
     Indication: Multiple sclerosis
     Dosage: 20MG DAILY SUBCUTANEOUS
     Route: 058
  2. DALFAMPRIDINE [Suspect]
     Active Substance: DALFAMPRIDINE
     Indication: Multiple sclerosis
     Dosage: 10 MG EVERY 12 HOURS ORAL
     Route: 048
     Dates: start: 201905

REACTIONS (7)
  - Pyrexia [None]
  - Delusion [None]
  - Fall [None]
  - Sensory loss [None]
  - Hypoaesthesia [None]
  - Influenza like illness [None]
  - Inappropriate schedule of product administration [None]
